FAERS Safety Report 25298975 (Version 1)
Quarter: 2025Q2

REPORT INFORMATION
  Report Type: Spontaneous
  Country: US (occurrence: US)
  Receive Date: 20250512
  Receipt Date: 20250512
  Transmission Date: 20250716
  Serious: Yes (Life-Threatening, Hospitalization, Other)
  Sender: VELOXIS PHARMACEUTICALS
  Company Number: US-MLMSERVICE-20250505-PI500389-00306-1

PATIENT
  Age: 31 Year
  Sex: Female

DRUGS (1)
  1. TACROLIMUS [Suspect]
     Active Substance: TACROLIMUS
     Indication: Product used for unknown indication

REACTIONS (10)
  - Immunosuppressant drug level increased [Unknown]
  - Effusion [Unknown]
  - Splenomegaly [Unknown]
  - Lymphadenopathy [Unknown]
  - Lethargy [Unknown]
  - Colitis [Unknown]
  - Hypotension [Unknown]
  - Pancytopenia [Unknown]
  - Acute kidney injury [Unknown]
  - Tremor [Unknown]
